FAERS Safety Report 7259794-2 (Version None)
Quarter: 2011Q1

REPORT INFORMATION
  Report Type: 
  Country: None (occurrence: None)
  Receive Date: 20110130
  Receipt Date: 20100904
  Transmission Date: 20110831
  Serious: No
  Sender: FDA-Public Use
  Company Number: US-ABBOTT-10P-163-0668914-00

PATIENT
  Age: 36 Year
  Sex: Female

DRUGS (7)
  1. ADVIL [Concomitant]
     Indication: PAIN MANAGEMENT
  2. ZYRTEC [Concomitant]
     Indication: HYPERSENSITIVITY
  3. TRI-SPRINTEC [Concomitant]
     Indication: CONTRACEPTION
  4. HUMIRA [Suspect]
     Indication: RHEUMATOID ARTHRITIS
     Dates: start: 20100823
  5. ADVAIR [Concomitant]
     Indication: ASTHMA
  6. ALEVE [Concomitant]
     Indication: PAIN MANAGEMENT
  7. VENTOLIN [Concomitant]
     Indication: ASTHMA
     Route: 055

REACTIONS (2)
  - RASH PRURITIC [None]
  - RASH ERYTHEMATOUS [None]
